FAERS Safety Report 7105571-2 (Version None)
Quarter: 2010Q4

REPORT INFORMATION
  Report Type: 
  Country: None (occurrence: None)
  Receive Date: 20101110
  Receipt Date: 20101101
  Transmission Date: 20110411
  Serious: Yes (Other)
  Sender: FDA-Public Use
  Company Number: 2010US004366

PATIENT
  Sex: Male

DRUGS (3)
  1. PROGRAF [Suspect]
     Indication: RENAL TRANSPLANT
  2. PERCOCET [Concomitant]
  3. PREDNISONE TAB [Concomitant]

REACTIONS (2)
  - HALLUCINATION [None]
  - KIDNEY TRANSPLANT REJECTION [None]
